FAERS Safety Report 7737223-X (Version None)
Quarter: 2011Q3

REPORT INFORMATION
  Report Type: 
  Country: None (occurrence: None)
  Receive Date: 20110902
  Receipt Date: 20110824
  Transmission Date: 20111222
  Serious: Yes (Disabling)
  Sender: FDA-Public Use
  Company Number: 2011MA012558

PATIENT
  Age: 87 Year
  Sex: Male

DRUGS (3)
  1. TRAMADOL HYDROCHLORIDE [Suspect]
     Indication: PAIN
     Dosage: PO
     Route: 048
  2. ENTACAPONE [Concomitant]
  3. COBENELDOPA [Concomitant]

REACTIONS (3)
  - IMMOBILE [None]
  - MOBILITY DECREASED [None]
  - GAIT DISTURBANCE [None]
